FAERS Safety Report 8781718 (Version 2)
Quarter: 2012Q4

REPORT INFORMATION
  Report Type: Report from Study
  Country: US (occurrence: US)
  Receive Date: 20120913
  Receipt Date: 20121029
  Transmission Date: 20130627
  Serious: Yes (Death, Hospitalization)
  Sender: FDA-Public Use
  Company Number: US-JNJFOC-20120903518

PATIENT
  Age: 77 None
  Sex: Male
  Weight: 88.45 kg

DRUGS (8)
  1. REMICADE [Suspect]
     Indication: PSORIATIC ARTHROPATHY
     Route: 042
     Dates: start: 20120504
  2. NOVOLOG [Concomitant]
     Route: 065
  3. GABAPENTIN [Concomitant]
     Route: 065
  4. CELEBREX [Concomitant]
     Route: 065
  5. SYNTHROID [Concomitant]
     Route: 065
  6. AMITRIPTYLIN [Concomitant]
     Route: 065
  7. DEXAMETHASONE [Concomitant]
     Route: 065
  8. KEPPRA [Concomitant]
     Route: 065

REACTIONS (4)
  - Multi-organ failure [Fatal]
  - Infection [Unknown]
  - Tuberculosis [Unknown]
  - White blood cell count decreased [Unknown]
